FAERS Safety Report 4602728-7 (Version None)
Quarter: 2005Q1

REPORT INFORMATION
  Report Type: 
  Country: None (occurrence: None)
  Receive Date: 20050309
  Receipt Date: 20050304
  Transmission Date: 20050727
  Serious: Yes (Disabling)
  Sender: FDA-Public Use
  Company Number: US-MERCK-0503USA00762

PATIENT
  Age: 67 Year
  Sex: Female

DRUGS (8)
  1. ZOCOR [Suspect]
     Indication: BLOOD CHOLESTEROL INCREASED
     Route: 048
     Dates: start: 20030101, end: 20040101
  2. PLAVIX [Concomitant]
     Route: 065
  3. [THERAPY UNSPECIFIED] [Concomitant]
     Route: 065
  4. ATENOLOL [Concomitant]
     Route: 065
  5. LEVOXYL [Concomitant]
     Route: 065
  6. ASPIRIN [Concomitant]
     Route: 065
  7. DIURETIC (UNSPECIFIED) [Concomitant]
     Route: 065
  8. VIOXX [Concomitant]
     Route: 048

REACTIONS (2)
  - MUSCLE SPASMS [None]
  - OEDEMA PERIPHERAL [None]
